FAERS Safety Report 25440092 (Version 1)
Quarter: 2025Q2

REPORT INFORMATION
  Report Type: Spontaneous
  Country: US (occurrence: None)
  Receive Date: 20250613
  Receipt Date: 20250613
  Transmission Date: 20250716
  Serious: Yes (Hospitalization)
  Sender: FDA-CTU
  Company Number: None

PATIENT
  Age: 76 Year
  Sex: Male
  Weight: 66.2 kg

DRUGS (2)
  1. LENVIMA [Suspect]
     Active Substance: LENVATINIB
     Indication: Renal cancer
     Dosage: 18 MG DAILY ORAL
     Route: 048
     Dates: start: 20250409, end: 20250523
  2. EVEROLIMUS [Suspect]
     Active Substance: EVEROLIMUS
     Indication: Renal cancer
     Dosage: 5 MG DAILY ORAL
     Route: 048
     Dates: start: 20250409, end: 20250523

REACTIONS (6)
  - Agitation [None]
  - Hypertension [None]
  - Status epilepticus [None]
  - Posterior reversible encephalopathy syndrome [None]
  - Central nervous system infection [None]
  - Unresponsive to stimuli [None]

NARRATIVE: CASE EVENT DATE: 20250523
